FAERS Safety Report 23757060 (Version 1)
Quarter: 2024Q2

REPORT INFORMATION
  Report Type: Spontaneous
  Country: US (occurrence: US)
  Receive Date: 20240418
  Receipt Date: 20240418
  Transmission Date: 20240716
  Serious: No
  Sender: FDA-Public Use
  Company Number: US-PFIZER INC-PV202400051171

PATIENT
  Age: 43 Year
  Sex: Female

DRUGS (1)
  1. XELJANZ XR [Suspect]
     Active Substance: TOFACITINIB CITRATE
     Indication: Crohn^s disease
     Dosage: 11 MG, 1X/DAY
     Route: 048
     Dates: start: 202403, end: 2024

REACTIONS (2)
  - Headache [Unknown]
  - Middle insomnia [Unknown]

NARRATIVE: CASE EVENT DATE: 20240301
